FAERS Safety Report 5947250-0 (Version None)
Quarter: 2008Q4

REPORT INFORMATION
  Report Type: 
  Country: None (occurrence: None)
  Receive Date: 20081110
  Receipt Date: 20081110
  Transmission Date: 20090506
  Serious: Yes (Life-Threatening, Hospitalization)
  Sender: FDA-Public Use
  Company Number: NZ-B.I. PHARMACEUTICALS,INC./RIDGEFIELD-2008-BP-14913AU

PATIENT
  Sex: Male
  Weight: 127 kg

DRUGS (5)
  1. COMBIVENT [Suspect]
     Indication: CHRONIC OBSTRUCTIVE PULMONARY DISEASE
     Dosage: 8PUF
     Dates: start: 20080807, end: 20080825
  2. ACCURETIC [Concomitant]
     Indication: HYPERTENSION
     Route: 048
  3. ASPRIN ENTERIC COATED [Concomitant]
     Indication: CEREBROVASCULAR DISORDER
     Dosage: 100MG
     Route: 048
  4. METFORMIN HCL [Concomitant]
     Indication: DIABETES MELLITUS
     Route: 048
  5. TRIAZOLAM [Concomitant]
     Indication: POOR QUALITY SLEEP
     Dosage: .25MG
     Route: 048

REACTIONS (6)
  - ANGIOEDEMA [None]
  - EPISTAXIS [None]
  - PARAESTHESIA ORAL [None]
  - RASH GENERALISED [None]
  - TOXIC EPIDERMAL NECROLYSIS [None]
  - WHEEZING [None]
